FAERS Safety Report 4492769-5 (Version None)
Quarter: 2004Q4

REPORT INFORMATION
  Report Type: 
  Country: None (occurrence: None)
  Receive Date: 20041102
  Receipt Date: 20041022
  Transmission Date: 20050328
  Serious: Yes (Hospitalization)
  Sender: FDA-Public Use
  Company Number: B0349117A

PATIENT
  Age: 29 Year
  Sex: Female

DRUGS (6)
  1. EPIVIR [Suspect]
     Indication: HIV INFECTION
     Dosage: ORAL
     Route: 048
     Dates: start: 20041004
  2. STAVUDINE (STAVUDINE) [Suspect]
     Indication: HIV INFECTION
     Dosage: ORAL
     Route: 048
     Dates: start: 20041004
  3. CO-TRIMOXAZOLE [Concomitant]
  4. VITAMIN B COMPLEX CAP [Concomitant]
  5. ASCORBIC ACID [Concomitant]
  6. RETINOL [Concomitant]

REACTIONS (3)
  - ABDOMINAL PAIN [None]
  - OESOPHAGEAL CANDIDIASIS [None]
  - VOMITING [None]
